FAERS Safety Report 8390229-2 (Version None)
Quarter: 2012Q2

REPORT INFORMATION
  Report Type: 
  Country: None (occurrence: None)
  Receive Date: 20120529
  Receipt Date: 20120522
  Transmission Date: 20120825
  Serious: Yes (Other)
  Sender: FDA-Public Use
  Company Number: BR-PFIZER INC-2012124774

PATIENT
  Age: 67 Year
  Sex: Female
  Weight: 72 kg

DRUGS (2)
  1. XALATAN [Suspect]
     Indication: INTRAOCULAR PRESSURE TEST ABNORMAL
     Dosage: 3 UG (ONE DROP IN EACH EYE), 1X/DAY
     Route: 047
     Dates: start: 20100522
  2. EUTHYROX [Concomitant]
     Indication: THYROID DISORDER
     Dosage: 50 MG, 1X/DAY (IN FASTING)
     Dates: start: 20040101, end: 20120101

REACTIONS (1)
  - CATARACT [None]
